FAERS Safety Report 7527689-2 (Version None)
Quarter: 2011Q2

REPORT INFORMATION
  Report Type: 
  Country: None (occurrence: None)
  Receive Date: 20110607
  Receipt Date: 20110524
  Transmission Date: 20111010
  Serious: Yes (Disabling)
  Sender: FDA-Public Use
  Company Number: PHHO2010DE19645

PATIENT
  Sex: Female

DRUGS (4)
  1. CALCIUM CARBONATE [Concomitant]
  2. VITAMIN D [Concomitant]
  3. ZOLEDRONIC ACID [Suspect]
     Indication: METASTASES TO BONE
     Dosage: 4 MG, MONTHLY
     Route: 042
     Dates: start: 20090311, end: 20090731
  4. ZOLEDRONIC ACID [Suspect]
     Dosage: 4 MG, THREE MONTHLY
     Route: 042
     Dates: start: 20091031, end: 20101029

REACTIONS (1)
  - OSTEONECROSIS OF JAW [None]
